FAERS Safety Report 8797237 (Version 1)
Quarter: 2012Q4

REPORT INFORMATION
  Report Type: Report from Study
  Country: US (occurrence: US)
  Receive Date: 20120919
  Receipt Date: 20120919
  Transmission Date: 20130627
  Serious: Yes (Hospitalization)
  Sender: FDA-Public Use
  Company Number: US-ROCHE-1118531

PATIENT
  Age: 59 Year
  Sex: Female
  Weight: 72 kg

DRUGS (22)
  1. MABTHERA [Suspect]
     Indication: PRODUCT USED FOR UNKNOWN INDICATION
     Route: 042
     Dates: start: 20120627, end: 20120627
  2. BORTEZOMIB [Suspect]
     Indication: PRODUCT USED FOR UNKNOWN INDICATION
     Route: 042
     Dates: start: 20120706, end: 20120727
  3. DIFLUCAN [Concomitant]
  4. SULFAMETHOXAZOLE ET TRIMETHOPRIME [Concomitant]
  5. PROMETHAZINE [Concomitant]
  6. OXYCODONE [Concomitant]
  7. CLONIDINE [Concomitant]
  8. DIOVAN [Concomitant]
  9. DOXERCALCIFEROL [Concomitant]
  10. VENOFER [Concomitant]
  11. SYMBICORT [Concomitant]
  12. SYMBICORT [Concomitant]
  13. PREDNISOLONE [Concomitant]
  14. ALBUTEROL [Concomitant]
  15. LOPRESSOR [Concomitant]
  16. RENVELA [Concomitant]
  17. PROCRIT [Concomitant]
  18. DOXERCALCIFEROL [Concomitant]
  19. VENOFER [Concomitant]
  20. SYMBICORT [Concomitant]
  21. PREDNISONE [Concomitant]
  22. ALBUTEROL [Concomitant]

REACTIONS (6)
  - Oral disorder [Recovering/Resolving]
  - Vaginal lesion [Recovering/Resolving]
  - Rectal lesion [Recovering/Resolving]
  - Rash generalised [Recovering/Resolving]
  - Diarrhoea [Recovered/Resolved]
  - Abdominal pain [Recovering/Resolving]
